FAERS Safety Report 13563279 (Version 2)
Quarter: 2017Q2

REPORT INFORMATION
  Report Type: Spontaneous
  Country: US (occurrence: US)
  Receive Date: 20170519
  Receipt Date: 20170609
  Transmission Date: 20170830
  Serious: Yes (Hospitalization, Other)
  Sender: FDA-Public Use
  Company Number: US-009507513-1705USA006218

PATIENT
  Age: 47 Year
  Sex: Male

DRUGS (12)
  1. TEMODAR [Suspect]
     Active Substance: TEMOZOLOMIDE
     Dosage: UNK UNK, EVERY 4 WEEKS
     Route: 048
     Dates: start: 20150804, end: 20170117
  2. PERCOCET [Concomitant]
     Active Substance: ACETAMINOPHEN\OXYCODONE HYDROCHLORIDE
     Dosage: 1 DF, Q6H
     Route: 048
  3. TEMODAR [Suspect]
     Active Substance: TEMOZOLOMIDE
     Dosage: (150MG/M2) D1-5 OF 28 DAY CYCLE.
     Route: 048
     Dates: start: 20140512, end: 2015
  4. KEFRAL [Concomitant]
     Active Substance: CEFACLOR
     Dosage: UNK
  5. FIORICET [Concomitant]
     Active Substance: ACETAMINOPHEN\BUTALBITAL\CAFFEINE
     Dosage: 1 DF, Q4H
     Route: 048
  6. ACETAMINOPHEN (+) OXYCODONE HYDROCHLORIDE [Concomitant]
     Active Substance: ACETAMINOPHEN\OXYCODONE HYDROCHLORIDE
     Indication: PAIN
     Dosage: 1 TAB PO, Q4H, PRN AS NEEDED FOR PAIN
     Route: 048
  7. OXTELLAR [Concomitant]
     Dosage: 150 MG, QD
     Route: 048
  8. EMLA [Concomitant]
     Active Substance: LIDOCAINE\PRILOCAINE
     Dosage: 1 DF, ONCE
     Route: 061
  9. TEMODAR [Suspect]
     Active Substance: TEMOZOLOMIDE
     Indication: ASTROCYTOMA
     Dosage: 75 MG/M2, CYCLICAL
     Route: 048
     Dates: start: 20140512
  10. AVASTIN [Concomitant]
     Active Substance: BEVACIZUMAB
     Dosage: UNK
  11. KEPPRA [Concomitant]
     Active Substance: LEVETIRACETAM
     Dosage: 1000 MG, BID
     Route: 048
  12. ONDANSETRON [Concomitant]
     Active Substance: ONDANSETRON
     Indication: PROPHYLAXIS OF NAUSEA AND VOMITING
     Dosage: B MG, PO BID, PRN AS NEEDED FOR NAUSEA/VOMITING
     Route: 048

REACTIONS (4)
  - Blood pressure increased [Unknown]
  - Wound infection [Recovered/Resolved]
  - Malignant neoplasm progression [Unknown]
  - Nephrolithiasis [Unknown]

NARRATIVE: CASE EVENT DATE: 20150421
